FAERS Safety Report 5743567-3 (Version None)
Quarter: 2008Q2

REPORT INFORMATION
  Report Type: 
  Country: None (occurrence: None)
  Receive Date: 20080516
  Receipt Date: 20080507
  Transmission Date: 20081010
  Serious: Yes (Other)
  Sender: FDA-Public Use
  Company Number: 2008AL003978

PATIENT
  Age: 33 Year
  Sex: Female

DRUGS (4)
  1. METFORMIN HYDROCHLORIDE [Suspect]
     Indication: DIABETES MELLITUS
     Dosage: 1 GRAM;BID;PO
     Route: 048
  2. PREDNISOLONE [Concomitant]
  3. ACTOS [Concomitant]
  4. INSULIN [Concomitant]

REACTIONS (4)
  - ANEURYSM [None]
  - DIABETES MELLITUS INADEQUATE CONTROL [None]
  - MACULAR OEDEMA [None]
  - UVEITIS [None]
